FAERS Safety Report 9312246 (Version 1)
Quarter: 2013Q2

REPORT INFORMATION
  Report Type: Spontaneous
  Country: GB (occurrence: GB)
  Receive Date: 20130528
  Receipt Date: 20130529
  Transmission Date: 20140414
  Serious: Yes (Death)
  Sender: FDA-Public Use
  Company Number: GB-BAXTER-2013BAX018590

PATIENT
  Sex: Female

DRUGS (4)
  1. FEIBA IMMUNO FACTOR VIII INHIBITOR BYPASSING FRACTION HUMAN VAPOUR HEA [Suspect]
     Indication: PROCOAGULANT THERAPY
     Route: 065
  2. FEIBA IMMUNO FACTOR VIII INHIBITOR BYPASSING FRACTION HUMAN VAPOUR HEA [Suspect]
     Indication: OFF LABEL USE
  3. FEIBA IMMUNO FACTOR VIII INHIBITOR BYPASSING FRACTION HUMAN VAPOUR HEA [Suspect]
     Indication: SURGERY
  4. PRADAXA [Concomitant]
     Indication: PRODUCT USED FOR UNKNOWN INDICATION

REACTIONS (2)
  - Sepsis [Fatal]
  - Organ failure [Fatal]
